FAERS Safety Report 5808993-2 (Version None)
Quarter: 2008Q3

REPORT INFORMATION
  Report Type: 
  Country: None (occurrence: None)
  Receive Date: 20080714
  Receipt Date: 20080602
  Transmission Date: 20090109
  Serious: Yes (Life-Threatening, Other)
  Sender: FDA-Public Use
  Company Number: ES-JNJFOC-20080601498

PATIENT
  Sex: Male

DRUGS (10)
  1. PREZISTA [Suspect]
     Indication: HIV INFECTION
     Route: 048
  2. MARAVIROC [Suspect]
     Indication: HIV INFECTION
     Route: 048
  3. MK-0518 [Suspect]
     Route: 048
  4. MK-0518 [Suspect]
     Indication: HIV INFECTION
     Route: 048
  5. RITONAVIR [Suspect]
     Indication: HIV INFECTION
     Route: 048
  6. CLONAZEPAM [Concomitant]
     Route: 048
  7. FOLINIC ACID [Concomitant]
     Route: 048
  8. GABAPENTIN [Concomitant]
     Route: 048
  9. MORPHINE SO4 [Concomitant]
     Route: 048
  10. OMEPRAZOLE [Concomitant]
     Route: 048

REACTIONS (1)
  - HEPATIC FAILURE [None]
